FAERS Safety Report 10600802 (Version 3)
Quarter: 2014Q4

REPORT INFORMATION
  Report Type: Spontaneous
  Country: US (occurrence: US)
  Receive Date: 20141124
  Receipt Date: 20141229
  Transmission Date: 20150529
  Serious: Yes (Other)
  Sender: FDA-Public Use
  Company Number: US-AMGEN-USASP2014090100

PATIENT
  Age: 57 Year
  Sex: Female
  Weight: 73.46 kg

DRUGS (1)
  1. ENBREL [Suspect]
     Active Substance: ETANERCEPT
     Indication: RHEUMATOID ARTHRITIS
     Dosage: 50 MG, QWK
     Route: 058
     Dates: start: 201405, end: 20141015

REACTIONS (7)
  - Wound complication [Not Recovered/Not Resolved]
  - Impaired healing [Not Recovered/Not Resolved]
  - Injury [Unknown]
  - Wound [Unknown]
  - Scab [Not Recovered/Not Resolved]
  - Wound infection [Unknown]
  - Laceration [Unknown]

NARRATIVE: CASE EVENT DATE: 20140911
